FAERS Safety Report 8346706-3 (Version None)
Quarter: 2012Q2

REPORT INFORMATION
  Report Type: 
  Country: None (occurrence: None)
  Receive Date: 20120509
  Receipt Date: 20120424
  Transmission Date: 20120825
  Serious: Yes (Death, Other)
  Sender: FDA-Public Use
  Company Number: CN-SANOFI-AVENTIS-2012SA029687

PATIENT
  Age: 82 Year
  Sex: Female

DRUGS (14)
  1. DIGOXIN [Interacting]
     Route: 048
     Dates: start: 20061227, end: 20061227
  2. SPIRONOLACTONE [Interacting]
     Route: 048
     Dates: start: 20061227, end: 20070102
  3. METOPROLOL TARTRATE [Concomitant]
     Indication: HYPERTENSION
  4. ACETYLSALICYLIC ACID SRT [Interacting]
     Route: 048
     Dates: start: 20061226, end: 20070102
  5. CEFOPERAZONE SODIUM [Interacting]
     Route: 042
     Dates: start: 20061226, end: 20061227
  6. CEFTRIAXONE [Interacting]
     Route: 042
     Dates: start: 20061228, end: 20061231
  7. METFORMIN HCL [Concomitant]
  8. PERINDOPRIL ERBUMINE [Interacting]
     Route: 048
     Dates: start: 20061226, end: 20061230
  9. GLIPIZIDE [Concomitant]
  10. LASIX [Suspect]
     Route: 048
     Dates: start: 20061226, end: 20070102
  11. DIGOXIN [Interacting]
     Route: 048
     Dates: start: 20061228, end: 20070102
  12. NITROGLYCERIN [Interacting]
     Dosage: ANY TIME
     Route: 042
     Dates: start: 20061226, end: 20070101
  13. DIGOXIN [Interacting]
     Route: 048
     Dates: start: 20061226, end: 20061226
  14. CEFTRIAXONE [Interacting]
     Route: 033
     Dates: start: 20061231, end: 20070102

REACTIONS (6)
  - HYPOTENSION [None]
  - NODAL RHYTHM [None]
  - CARDIAC FAILURE [None]
  - HYPOKALAEMIA [None]
  - SUPRAVENTRICULAR TACHYCARDIA [None]
  - LOSS OF CONSCIOUSNESS [None]
